FAERS Safety Report 6135345-0 (Version None)
Quarter: 2009Q1

REPORT INFORMATION
  Report Type: 
  Country: None (occurrence: None)
  Receive Date: 20090327
  Receipt Date: 20090317
  Transmission Date: 20090719
  Serious: Yes (Death)
  Sender: FDA-Public Use
  Company Number: US-PFIZER INC-2009186123

PATIENT
  Age: 80 Year
  Sex: Female

DRUGS (1)
  1. AMLODIPINE BESYLATE [Suspect]

REACTIONS (1)
  - HEPATIC FAILURE [None]
